FAERS Safety Report 12465967 (Version 1)
Quarter: 2016Q2

REPORT INFORMATION
  Report Type: Spontaneous
  Country: IN (occurrence: IN)
  Receive Date: 20160614
  Receipt Date: 20160614
  Transmission Date: 20160815
  Serious: Yes (Other)
  Sender: FDA-Public Use
  Company Number: ALCN2016IN004136

PATIENT
  Age: 38 Year
  Sex: Female

DRUGS (3)
  1. LATANOPROST. [Concomitant]
     Active Substance: LATANOPROST
     Indication: IRIDOCORNEAL ENDOTHELIAL SYNDROME
     Dosage: UNK GTT, UNK
     Route: 047
  2. BRIMONIDINE [Concomitant]
     Active Substance: BRIMONIDINE TARTRATE
     Indication: IRIDOCORNEAL ENDOTHELIAL SYNDROME
     Route: 061
  3. TIMOLOL GFS [Suspect]
     Active Substance: TIMOLOL MALEATE
     Indication: IRIDOCORNEAL ENDOTHELIAL SYNDROME
     Dosage: UNK GTT, UNK
     Route: 047

REACTIONS (4)
  - Iris atrophy [Recovered/Resolved]
  - Drug ineffective [Not Recovered/Not Resolved]
  - Pupillary disorder [Recovered/Resolved]
  - Corneal opacity [Recovered/Resolved]
